FAERS Safety Report 8431729-6 (Version None)
Quarter: 2012Q2

REPORT INFORMATION
  Report Type: 
  Country: None (occurrence: None)
  Receive Date: 20120323
  Receipt Date: 20110627
  Transmission Date: 20120825
  Serious: Yes (Hospitalization)
  Sender: FDA-Public Use
  Company Number: 163-21880-11063635

PATIENT
  Age: 46 Year
  Sex: Female

DRUGS (4)
  1. WARFARIN SODIUM [Concomitant]
  2. LENALIDOMIDE [Suspect]
     Indication: MULTIPLE MYELOMA
     Dosage: 25 MG, X 21, PO
     Route: 048
     Dates: start: 20110608
  3. POTASSIUM CHLORIDE [Concomitant]
  4. DEXAMETHASONE [Concomitant]

REACTIONS (6)
  - FATIGUE [None]
  - FULL BLOOD COUNT DECREASED [None]
  - DEHYDRATION [None]
  - RHINITIS [None]
  - BLOOD CREATININE DECREASED [None]
  - COUGH [None]
